FAERS Safety Report 14203642 (Version 2)
Quarter: 2018Q1

REPORT INFORMATION
  Report Type: Spontaneous
  Country: US (occurrence: US)
  Receive Date: 20171120
  Receipt Date: 20180222
  Transmission Date: 20180508
  Serious: No
  Sender: FDA-Public Use
  Company Number: US-PFIZER INC-2017492600

PATIENT
  Age: 9 Year
  Sex: Female

DRUGS (1)
  1. LEVOTHYROXINE SODIUM. [Suspect]
     Active Substance: LEVOTHYROXINE SODIUM
     Indication: HYPOTHYROIDISM
     Dosage: 62.5 UG, DAILY (1/2 TABLET BY MOUTH EVERY DAY)
     Route: 048

REACTIONS (2)
  - Dry skin [Unknown]
  - Constipation [Unknown]
